FAERS Safety Report 16851359 (Version 2)
Quarter: 2019Q4

REPORT INFORMATION
  Report Type: Spontaneous
  Country: US (occurrence: US)
  Receive Date: 20190925
  Receipt Date: 20191112
  Transmission Date: 20200122
  Serious: Yes (Hospitalization, Other)
  Sender: FDA-Public Use
  Company Number: US-NXDC-GLE-0046-2019

PATIENT
  Age: 61 Year
  Sex: Female
  Weight: 95.7 kg

DRUGS (3)
  1. DILANTIN [Concomitant]
     Active Substance: PHENYTOIN
  2. KEPPRA [Concomitant]
     Active Substance: LEVETIRACETAM
  3. GLEOLAN [Suspect]
     Active Substance: AMINOLEVULINIC ACID HYDROCHLORIDE
     Indication: GLIOBLASTOMA
     Dosage: 1950 MG
     Dates: start: 20190815, end: 20190815

REACTIONS (4)
  - Blood creatinine increased [Recovered/Resolved]
  - Deep vein thrombosis [Unknown]
  - Gamma-glutamyltransferase increased [Recovering/Resolving]
  - Seizure [Not Recovered/Not Resolved]

NARRATIVE: CASE EVENT DATE: 20190818
